FAERS Safety Report 12788249 (Version 1)
Quarter: 2016Q3

REPORT INFORMATION
  Report Type: Report from Study
  Country: US (occurrence: US)
  Receive Date: 20160928
  Receipt Date: 20160928
  Transmission Date: 20161109
  Serious: Yes (Other)
  Sender: FDA-Public Use
  Company Number: US-ROCHE-1834716

PATIENT
  Age: 60 Year
  Sex: Female
  Weight: 54 kg

DRUGS (29)
  1. BEVACIZUMAB [Suspect]
     Active Substance: BEVACIZUMAB
     Dosage: OVER 30-90 MINUTES ON DAY 1?COURSE ID 3
     Route: 042
     Dates: start: 20120321
  2. BEVACIZUMAB [Suspect]
     Active Substance: BEVACIZUMAB
     Dosage: OVER 30-90 MINUTES ON DAY 1?COURSE ID 19
     Route: 042
     Dates: start: 20130314
  3. BEVACIZUMAB [Suspect]
     Active Substance: BEVACIZUMAB
     Dosage: OVER 30-90 MINUTES ON DAY 1?COURSE ID 24
     Route: 042
     Dates: start: 20130627
  4. IXABEPILONE [Suspect]
     Active Substance: IXABEPILONE
     Dosage: OVER 1 HOUR ON DAY 1?COURSE ID 2
     Route: 042
     Dates: start: 20120222
  5. BEVACIZUMAB [Suspect]
     Active Substance: BEVACIZUMAB
     Dosage: OVER 30-90 MINUTES ON DAY 1?COURSE ID 2
     Route: 042
     Dates: start: 20120222
  6. BEVACIZUMAB [Suspect]
     Active Substance: BEVACIZUMAB
     Dosage: OVER 30-90 MINUTES ON DAY 1?COURSE ID 9
     Route: 042
     Dates: start: 20120801
  7. IXABEPILONE [Suspect]
     Active Substance: IXABEPILONE
     Indication: ENDOMETRIAL CANCER
     Dosage: OVER 1 HOUR ON DAY 1?COURSE ID 1
     Route: 042
     Dates: start: 20120131
  8. IXABEPILONE [Suspect]
     Active Substance: IXABEPILONE
     Dosage: OVER 1 HOUR ON DAY 1?COURSE ID 3
     Route: 042
     Dates: start: 20120321
  9. IXABEPILONE [Suspect]
     Active Substance: IXABEPILONE
     Dosage: OVER 1 HOUR ON DAY 1?COURSE ID 4
     Route: 042
     Dates: start: 20120411
  10. IXABEPILONE [Suspect]
     Active Substance: IXABEPILONE
     Dosage: OVER 1 HOUR ON DAY 1?COURSE ID 5
     Route: 042
     Dates: start: 20120509
  11. IXABEPILONE [Suspect]
     Active Substance: IXABEPILONE
     Dosage: OVER 1 HOUR ON DAY 1?COURSE ID 6
     Route: 042
     Dates: start: 20120530
  12. BEVACIZUMAB [Suspect]
     Active Substance: BEVACIZUMAB
     Indication: ENDOMETRIAL CANCER
     Dosage: OVER 30-90 MINUTES ON DAY 1?COURSE ID 1
     Route: 042
     Dates: start: 20120131
  13. BEVACIZUMAB [Suspect]
     Active Substance: BEVACIZUMAB
     Dosage: OVER 30-90 MINUTES ON DAY 1?COURSE ID 8
     Route: 042
     Dates: start: 20120711
  14. BEVACIZUMAB [Suspect]
     Active Substance: BEVACIZUMAB
     Dosage: OVER 30-90 MINUTES ON DAY 1?COURSE ID 18
     Route: 042
     Dates: start: 20130221
  15. BEVACIZUMAB [Suspect]
     Active Substance: BEVACIZUMAB
     Dosage: OVER 30-90 MINUTES ON DAY 1?COURSE ID 28
     Route: 042
     Dates: start: 20131003, end: 20131114
  16. BEVACIZUMAB [Suspect]
     Active Substance: BEVACIZUMAB
     Dosage: OVER 30-90 MINUTES ON DAY 1?COURSE ID 6
     Route: 042
     Dates: start: 20120530
  17. BEVACIZUMAB [Suspect]
     Active Substance: BEVACIZUMAB
     Dosage: OVER 30-90 MINUTES ON DAY 1?COURSE ID 20
     Route: 042
     Dates: start: 20130404
  18. BEVACIZUMAB [Suspect]
     Active Substance: BEVACIZUMAB
     Dosage: OVER 30-90 MINUTES ON DAY 1?COURSE ID 10
     Route: 042
     Dates: start: 20120829
  19. BEVACIZUMAB [Suspect]
     Active Substance: BEVACIZUMAB
     Dosage: OVER 30-90 MINUTES ON DAY 1?COURSE ID 4
     Route: 042
     Dates: start: 20120411
  20. BEVACIZUMAB [Suspect]
     Active Substance: BEVACIZUMAB
     Dosage: OVER 30-90 MINUTES ON DAY 1?COURSE ID 7
     Route: 042
     Dates: start: 20120620
  21. BEVACIZUMAB [Suspect]
     Active Substance: BEVACIZUMAB
     Dosage: OVER 30-90 MINUTES ON DAY 1?COURSE ID 11
     Route: 042
     Dates: start: 20120926
  22. BEVACIZUMAB [Suspect]
     Active Substance: BEVACIZUMAB
     Dosage: OVER 30-90 MINUTES ON DAY 1?COURSE ID 13
     Route: 042
     Dates: start: 20121107
  23. BEVACIZUMAB [Suspect]
     Active Substance: BEVACIZUMAB
     Dosage: OVER 30-90 MINUTES ON DAY 1?COURSE ID 14
     Route: 042
     Dates: start: 20121129
  24. BEVACIZUMAB [Suspect]
     Active Substance: BEVACIZUMAB
     Dosage: OVER 30-90 MINUTES ON DAY 1?COURSE ID 5
     Route: 042
     Dates: start: 20120509
  25. BEVACIZUMAB [Suspect]
     Active Substance: BEVACIZUMAB
     Dosage: OVER 30-90 MINUTES ON DAY 1?COURSE ID 12
     Route: 042
     Dates: start: 20121017
  26. BEVACIZUMAB [Suspect]
     Active Substance: BEVACIZUMAB
     Dosage: OVER 30-90 MINUTES ON DAY 1?COURSE ID 15
     Route: 042
     Dates: start: 20121220
  27. BEVACIZUMAB [Suspect]
     Active Substance: BEVACIZUMAB
     Dosage: OVER 30-90 MINUTES ON DAY 1?COURSE ID 16
     Route: 042
     Dates: start: 20130110
  28. IXABEPILONE [Suspect]
     Active Substance: IXABEPILONE
     Dosage: OVER 1 HOUR ON DAY 1?COURSE ID 7 TO 28
     Route: 042
     Dates: start: 20120620, end: 20131114
  29. CARBOPLATIN. [Suspect]
     Active Substance: CARBOPLATIN
     Indication: ENDOMETRIAL CANCER
     Dosage: OVER 30 MINUTES ON DAY 1
     Route: 042

REACTIONS (3)
  - White blood cell count decreased [Unknown]
  - Ascites [Unknown]
  - Neutrophil count decreased [Unknown]
